FAERS Safety Report 9897775 (Version 3)
Quarter: 2014Q2

REPORT INFORMATION
  Report Type: Spontaneous
  Country: FR (occurrence: FR)
  Receive Date: 20140214
  Receipt Date: 20140408
  Transmission Date: 20141212
  Serious: Yes (Hospitalization)
  Sender: FDA-Public Use
  Company Number: FR-NOVOPROD-399823

PATIENT
  Age: 5 Year
  Sex: Male
  Weight: 10.6 kg

DRUGS (2)
  1. NORDITROPIN SIMPLEXX [Suspect]
     Indication: GROWTH HORMONE DEFICIENCY
     Dosage: 0.5 MG, QD
     Route: 058
     Dates: start: 201306
  2. NORDITROPIN SIMPLEXX [Suspect]
     Dosage: 0.5 MG, QD
     Route: 058
     Dates: start: 20130701

REACTIONS (7)
  - General physical health deterioration [Unknown]
  - Weight gain poor [Recovered/Resolved]
  - Muscle atrophy [Unknown]
  - Decreased appetite [Unknown]
  - Oral herpes [Unknown]
  - Malaise [Unknown]
  - Toxicity to various agents [Unknown]
